FAERS Safety Report 5484880-7 (Version None)
Quarter: 2007Q4

REPORT INFORMATION
  Report Type: 
  Country: None (occurrence: None)
  Receive Date: 20071010
  Receipt Date: 20071002
  Transmission Date: 20080405
  Serious: Yes (Hospitalization, Other)
  Sender: FDA-Public Use
  Company Number: E2090-00324-SPO-ES

PATIENT
  Age: 65 Year
  Sex: Female

DRUGS (6)
  1. ZONEGRAN [Suspect]
     Indication: EPILEPSY
     Dosage: 300 MG, 1 IN 1 D, ORAL
     Route: 048
     Dates: start: 20070312, end: 20070614
  2. TEGRETOL [Concomitant]
  3. PREVENCOR         (ATORVASTATIN CALCIUM) [Concomitant]
  4. ADALAT [Concomitant]
  5. COLCHICUM JTL LIQ [Concomitant]
  6. KEPPRA [Concomitant]

REACTIONS (1)
  - NEUTROPENIA [None]
